FAERS Safety Report 18045067 (Version 1)
Quarter: 2020Q3

REPORT INFORMATION
  Report Type: Spontaneous
  Country: US (occurrence: US)
  Receive Date: 20200720
  Receipt Date: 20200720
  Transmission Date: 20201103
  Serious: Yes (Other)
  Sender: FDA-Public Use
  Company Number: NVSC2020US201572

PATIENT
  Age: 79 Year
  Sex: Male
  Weight: 90.72 kg

DRUGS (5)
  1. BEOVU [Suspect]
     Active Substance: BROLUCIZUMAB-DBLL
     Dosage: 6 MG, QMO
     Route: 047
  2. BEOVU [Suspect]
     Active Substance: BROLUCIZUMAB-DBLL
     Indication: NEOVASCULAR AGE-RELATED MACULAR DEGENERATION
     Dosage: 6 MG, QMO (FIRST 3 INJECTIONS FOR MONTHLY)
     Route: 047
     Dates: start: 20200131
  3. BEOVU [Suspect]
     Active Substance: BROLUCIZUMAB-DBLL
     Dosage: 6 MG, QMO
     Route: 047
  4. BEOVU [Suspect]
     Active Substance: BROLUCIZUMAB-DBLL
     Dosage: 6 MG (4TH INJECTION AT 6 WEEKS)
     Route: 047
  5. BEOVU [Suspect]
     Active Substance: BROLUCIZUMAB-DBLL
     Dosage: 6 MG (5TH INJECTION 6 WEEKS LATER)
     Route: 047
     Dates: end: 20200616

REACTIONS (2)
  - Choroidal infarction [Unknown]
  - Retinal artery occlusion [Unknown]

NARRATIVE: CASE EVENT DATE: 20200630
